FAERS Safety Report 4300251-0 (Version None)
Quarter: 2004Q1

REPORT INFORMATION
  Report Type: 
  Country: None (occurrence: None)
  Receive Date: 20040218
  Receipt Date: 20040202
  Transmission Date: 20041129
  Serious: Yes (Death)
  Sender: FDA-Public Use
  Company Number: GBS030413027

PATIENT
  Age: 57 Year
  Sex: Female
  Weight: 80 kg

DRUGS (5)
  1. ZYPREXA [Suspect]
     Indication: BIPOLAR DISORDER
  2. ZYPREXA [Suspect]
     Indication: MANIA
  3. ZOPICLONE [Concomitant]
  4. TEMAZEPAM [Concomitant]
  5. LAMOTRIGINE [Concomitant]

REACTIONS (16)
  - AORTIC ATHEROSCLEROSIS [None]
  - CARDIAC ARREST [None]
  - COMPLETED SUICIDE [None]
  - CORONARY ARTERY ATHEROSCLEROSIS [None]
  - CYCLOTHYMIC DISORDER [None]
  - DRUG TOXICITY [None]
  - HAEMOGLOBIN INCREASED [None]
  - INFECTION [None]
  - LYMPHOCYTE COUNT INCREASED [None]
  - MONOCYTE COUNT INCREASED [None]
  - MULTIPLE DRUG OVERDOSE [None]
  - NEPHROSCLEROSIS [None]
  - NEUTROPHIL COUNT INCREASED [None]
  - PLATELET COUNT INCREASED [None]
  - RED BLOOD CELL COUNT INCREASED [None]
  - WHITE BLOOD CELL COUNT INCREASED [None]
